FAERS Safety Report 18132951 (Version 1)
Quarter: 2020Q3

REPORT INFORMATION
  Report Type: Spontaneous
  Country: US (occurrence: US)
  Receive Date: 20200811
  Receipt Date: 20200811
  Transmission Date: 20201103
  Serious: No
  Sender: FDA-Public Use
  Company Number: US-JNJFOC-20200807227

PATIENT
  Sex: Male
  Weight: 131.66 kg

DRUGS (2)
  1. MORPHINE [Concomitant]
     Active Substance: MORPHINE
     Indication: PRODUCT USED FOR UNKNOWN INDICATION
     Route: 065
  2. TREMFYA [Suspect]
     Active Substance: GUSELKUMAB
     Indication: ACNE CONGLOBATA
     Route: 065

REACTIONS (3)
  - Drug ineffective for unapproved indication [Unknown]
  - Arthralgia [Not Recovered/Not Resolved]
  - Off label use [Unknown]
